FAERS Safety Report 17198819 (Version 2)
Quarter: 2020Q1

REPORT INFORMATION
  Report Type: Spontaneous
  Country: TW (occurrence: TW)
  Receive Date: 20191225
  Receipt Date: 20200111
  Transmission Date: 20200409
  Serious: Yes (Hospitalization, Other)
  Sender: FDA-Public Use
  Company Number: TW-AMGEN-TWNSP2019213843

PATIENT
  Age: 85 Year
  Sex: Male

DRUGS (1)
  1. ENBREL [Suspect]
     Active Substance: ETANERCEPT
     Indication: PSORIATIC ARTHROPATHY
     Dosage: 50 MILLIGRAM, QWK
     Route: 058
     Dates: start: 20160817, end: 20191216

REACTIONS (9)
  - Cough [Not Recovered/Not Resolved]
  - Colitis [Not Recovered/Not Resolved]
  - Gastric ulcer [Unknown]
  - Decubitus ulcer [Not Recovered/Not Resolved]
  - Decreased appetite [Unknown]
  - Pyrexia [Not Recovered/Not Resolved]
  - Choking [Not Recovered/Not Resolved]
  - Faeces discoloured [Unknown]
  - Weight decreased [Unknown]
